FAERS Safety Report 12340000 (Version 2)
Quarter: 2016Q2

REPORT INFORMATION
  Report Type: Spontaneous
  Country: US (occurrence: US)
  Receive Date: 20160506
  Receipt Date: 20160519
  Transmission Date: 20160815
  Serious: No
  Sender: FDA-Public Use
  Company Number: US-ASTRAZENECA-2016SE33475

PATIENT
  Age: 655 Month
  Sex: Female
  Weight: 52.2 kg

DRUGS (3)
  1. CALCIUM [Concomitant]
     Active Substance: CALCIUM
     Indication: BONE DISORDER
     Route: 048
     Dates: start: 20160301
  2. ANASTROZOLE. [Suspect]
     Active Substance: ANASTROZOLE
     Indication: BREAST CANCER
     Dosage: BRECKENRIDGE  1 MG DAILY
     Route: 048
     Dates: start: 20160301, end: 20160324
  3. VITAMIN D [Concomitant]
     Active Substance: CHOLECALCIFEROL
     Indication: BONE DISORDER
     Route: 048
     Dates: start: 20160301

REACTIONS (13)
  - Coccydynia [Unknown]
  - Constipation [Unknown]
  - Condition aggravated [Unknown]
  - Abdominal distension [Unknown]
  - Arthralgia [Unknown]
  - Vaginal disorder [Unknown]
  - Amnesia [Unknown]
  - Dysstasia [Unknown]
  - Hot flush [Not Recovered/Not Resolved]
  - Flatulence [Unknown]
  - Activities of daily living impaired [Unknown]
  - Back pain [Unknown]
  - Abdominal pain [Unknown]

NARRATIVE: CASE EVENT DATE: 201603
